FAERS Safety Report 11803242 (Version 1)
Quarter: 2015Q4

REPORT INFORMATION
  Report Type: Spontaneous
  Country: PL (occurrence: PL)
  Receive Date: 20151204
  Receipt Date: 20151204
  Transmission Date: 20160305
  Serious: Yes (Other)
  Sender: FDA-Public Use
  Company Number: PL-BAYER-2015-475718

PATIENT
  Age: 18 Year
  Sex: Female
  Weight: 55 kg

DRUGS (2)
  1. CORHYDRON [Concomitant]
     Dosage: 200 MG, ONCE
     Route: 042
     Dates: start: 20150909, end: 20150909
  2. GADOVIST [Suspect]
     Active Substance: GADOBUTROL
     Dosage: 6 ML, ONCE
     Route: 042
     Dates: start: 20150909, end: 20150909

REACTIONS (5)
  - Unresponsive to stimuli [Unknown]
  - Nausea [Unknown]
  - Syncope [Unknown]
  - Dyspnoea [Unknown]
  - Lacrimation increased [Unknown]

NARRATIVE: CASE EVENT DATE: 20150909
